FAERS Safety Report 7347767-0 (Version None)
Quarter: 2011Q1

REPORT INFORMATION
  Report Type: 
  Country: None (occurrence: None)
  Receive Date: 20110311
  Receipt Date: 20110308
  Transmission Date: 20110831
  Serious: Yes (Hospitalization, Other)
  Sender: FDA-Public Use
  Company Number: US-PFIZER INC-2011049815

PATIENT
  Sex: Male

DRUGS (2)
  1. CIPROFLOXACIN [Concomitant]
     Dosage: UNK
  2. VIAGRA [Suspect]

REACTIONS (8)
  - PRESYNCOPE [None]
  - HYPOTENSION [None]
  - DIARRHOEA [None]
  - INFLUENZA LIKE ILLNESS [None]
  - BLOOD GLUCOSE DECREASED [None]
  - CANDIDIASIS [None]
  - WEIGHT DECREASED [None]
  - DIZZINESS [None]
